FAERS Safety Report 21352416 (Version 1)
Quarter: 2022Q3

REPORT INFORMATION
  Report Type: Spontaneous
  Country: US (occurrence: US)
  Receive Date: 20220920
  Receipt Date: 20220920
  Transmission Date: 20221026
  Serious: No
  Sender: FDA-Public Use
  Company Number: US-BION-010244

PATIENT

DRUGS (1)
  1. CETIRIZINE HYDROCHLORIDE [Suspect]
     Active Substance: CETIRIZINE HYDROCHLORIDE
     Indication: Sinusitis
     Dosage: STRENGTH: 10MG

REACTIONS (1)
  - Drug effective for unapproved indication [Not Recovered/Not Resolved]
